FAERS Safety Report 14611422 (Version 1)
Quarter: 2018Q1

REPORT INFORMATION
  Report Type: Report from Study
  Country: US (occurrence: US)
  Receive Date: 20180308
  Receipt Date: 20180308
  Transmission Date: 20180509
  Serious: No
  Sender: FDA-Public Use
  Company Number: US-AMGEN-USASL2018030745

PATIENT

DRUGS (5)
  1. ENBREL [Suspect]
     Active Substance: ETANERCEPT
     Indication: RHEUMATOID ARTHRITIS
     Dosage: UNK UNK, 2 TIMES/WK
     Route: 065
     Dates: start: 1998
  2. LISINOPRIL. [Concomitant]
     Active Substance: LISINOPRIL
     Dosage: 20/12.5 MG, QD
  3. SYNTHROID [Concomitant]
     Active Substance: LEVOTHYROXINE SODIUM
     Dosage: 0.075 MG, QD
  4. ENBREL [Suspect]
     Active Substance: ETANERCEPT
     Dosage: 50 MG, UNK
     Route: 065
  5. ENBREL [Suspect]
     Active Substance: ETANERCEPT
     Dosage: UNK UNK, QWK
     Route: 065

REACTIONS (5)
  - Injection site bruising [Unknown]
  - Drug dose omission [Unknown]
  - Feeling abnormal [Unknown]
  - Pyrexia [Unknown]
  - Mobility decreased [Unknown]
